FAERS Safety Report 4721952-6 (Version None)
Quarter: 2005Q3

REPORT INFORMATION
  Report Type: 
  Country: None (occurrence: None)
  Receive Date: 20050720
  Receipt Date: 20050708
  Transmission Date: 20060218
  Serious: Yes (Other)
  Sender: FDA-Public Use
  Company Number: GBWYE209017NOV04

PATIENT
  Age: 59 Year
  Sex: Female

DRUGS (6)
  1. GEMTUZUMAB OZOGAMICIN (GEMTUZUMAB OZOGAMICIN, INJECTION) [Suspect]
     Indication: ACUTE MYELOID LEUKAEMIA
     Dates: start: 20030101, end: 20030501
  2. CYTARABINE [Suspect]
     Indication: ACUTE MYELOID LEUKAEMIA
     Dosage: 2 GRAMS, DAYS 1-5;
  3. FLUDARABINE (FLUDARABINE, , 0) [Suspect]
     Indication: ACUTE MYELOID LEUKAEMIA
     Dosage: 30MG DAILY, DAYS 1-5
  4. GRANULOCYTE COLONY STIMULATING FACTOR (GRANULOCYTE COLONY STIMULATING [Suspect]
     Indication: ACUTE MYELOID LEUKAEMIA
  5. IDARUBICIN (IDARUBICIN , , 0) [Suspect]
     Indication: ACUTE MYELOID LEUKAEMIA
     Dosage: 12MG, DAYS 2-4
  6. NOVANTRONE [Suspect]
     Indication: ACUTE MYELOID LEUKAEMIA

REACTIONS (5)
  - ALANINE AMINOTRANSFERASE INCREASED [None]
  - BLOOD ALKALINE PHOSPHATASE INCREASED [None]
  - BLOOD BILIRUBIN INCREASED [None]
  - BONE MARROW DEPRESSION [None]
  - HEPATOTOXICITY [None]
